FAERS Safety Report 26105147 (Version 1)
Quarter: 2025Q4

REPORT INFORMATION
  Report Type: Spontaneous
  Country: EU (occurrence: EU)
  Receive Date: 20251201
  Receipt Date: 20251201
  Transmission Date: 20260117
  Serious: Yes (Hospitalization, Other)
  Sender: AMGEN
  Company Number: EU-AMGEN-POLSP2025233316

PATIENT
  Age: 43 Year
  Sex: Female

DRUGS (1)
  1. FILGRASTIM [Suspect]
     Active Substance: FILGRASTIM
     Indication: Haematopoietic stem cell mobilisation
     Dosage: UNK
     Route: 065

REACTIONS (10)
  - Myopathy [Recovered/Resolved]
  - Urinary tract infection [Not Recovered/Not Resolved]
  - Joint swelling [Recovered/Resolved]
  - Klippel-Feil syndrome [Recovered/Resolved]
  - Intervertebral disc degeneration [Recovered/Resolved]
  - Arthralgia [Recovered/Resolved]
  - Influenza like illness [Unknown]
  - Impaired quality of life [Unknown]
  - Supernumerary rib [Recovered/Resolved]
  - Periarthritis [Unknown]
